FAERS Safety Report 21989665 (Version 3)
Quarter: 2023Q2

REPORT INFORMATION
  Report Type: Spontaneous
  Country: US (occurrence: US)
  Receive Date: 20230214
  Receipt Date: 20230412
  Transmission Date: 20230722
  Serious: No
  Sender: FDA-Public Use
  Company Number: US-AMGEN-USASP2023024475

PATIENT
  Sex: Male

DRUGS (3)
  1. OTEZLA [Suspect]
     Active Substance: APREMILAST
     Indication: Psoriasis
     Dosage: 30 MILLIGRAM, BID
     Route: 048
     Dates: start: 20220907
  2. PROPECIA [Concomitant]
     Active Substance: FINASTERIDE
     Dosage: 1 MILLIGRAM
  3. TREMFYA [Concomitant]
     Active Substance: GUSELKUMAB
     Dosage: 100 MILLIGRAM PER MILLILITRE

REACTIONS (2)
  - Drug ineffective [Unknown]
  - Depression [Recovered/Resolved]
